FAERS Safety Report 4971047-1 (Version None)
Quarter: 2006Q2

REPORT INFORMATION
  Report Type: 
  Country: None (occurrence: None)
  Receive Date: 20060411
  Receipt Date: 20060411
  Transmission Date: 20061013
  Serious: Yes (Life-Threatening, Hospitalization, Other)
  Sender: FDA-Public Use
  Company Number: None

PATIENT
  Age: 43 Year
  Sex: Female
  Weight: 63.5036 kg

DRUGS (1)
  1. OXYCONTIN [Suspect]
     Indication: ARTHRALGIA
     Dosage: STARTED 80 MG., THEN 40 MG EIGHT TAB DAY PO
     Route: 048
     Dates: start: 20010911, end: 20031228

REACTIONS (13)
  - AMNESIA [None]
  - ANGER [None]
  - BACK PAIN [None]
  - CARDIOMEGALY [None]
  - COGNITIVE DISORDER [None]
  - DRUG EFFECT DECREASED [None]
  - DRUG WITHDRAWAL SYNDROME [None]
  - FATIGUE [None]
  - HEART RATE INCREASED [None]
  - HYPOACUSIS [None]
  - MENTAL DISORDER [None]
  - MUSCULAR WEAKNESS [None]
  - PAIN [None]
